FAERS Safety Report 7124033-X (Version None)
Quarter: 2010Q4

REPORT INFORMATION
  Report Type: 
  Country: None (occurrence: None)
  Receive Date: 20101126
  Receipt Date: 20101123
  Transmission Date: 20110411
  Serious: Yes (Other)
  Sender: FDA-Public Use
  Company Number: GB-PFIZER INC-2010154585

PATIENT
  Sex: Male

DRUGS (1)
  1. SUNITINIB MALATE [Suspect]

REACTIONS (1)
  - OSTEONECROSIS OF JAW [None]
